FAERS Safety Report 8979243 (Version 2)
Quarter: 2013Q1

REPORT INFORMATION
  Report Type: Spontaneous
  Country: DE (occurrence: DE)
  Receive Date: 20121221
  Receipt Date: 20130206
  Transmission Date: 20140127
  Serious: Yes (Hospitalization)
  Sender: FDA-Public Use
  Company Number: DE-ELI_LILLY_AND_COMPANY-DE201212004420

PATIENT
  Sex: Female

DRUGS (7)
  1. FORSTEO [Suspect]
     Indication: OSTEOPOROSIS
     Dosage: 20 UG, UNK
     Route: 058
     Dates: start: 201204
  2. TAPENTADOL [Concomitant]
  3. LYRICA [Concomitant]
  4. RAMIPRIL [Concomitant]
  5. MAGNESIUM [Concomitant]
  6. FOLIC ACID [Concomitant]
  7. VITAMIN D NOS [Concomitant]

REACTIONS (1)
  - Gastric haemorrhage [Unknown]
